FAERS Safety Report 5225551-1 (Version None)
Quarter: 2007Q1

REPORT INFORMATION
  Report Type: 
  Country: None (occurrence: None)
  Receive Date: 20070131
  Receipt Date: 20070119
  Transmission Date: 20070707
  Serious: Yes (Death, Hospitalization)
  Sender: FDA-Public Use
  Company Number: JP-PFIZER INC-2007006790

PATIENT
  Age: 65 Year
  Sex: Female

DRUGS (4)
  1. EPIRUBICIN HYDROCHLORIDE SOLUTION, STERILE [Suspect]
     Indication: BREAST CANCER METASTATIC
     Dosage: DAILY DOSE:60MG/M*2
     Route: 042
     Dates: start: 20060801, end: 20061201
  2. FLUOROURACIL [Suspect]
     Indication: BREAST CANCER METASTATIC
     Route: 042
     Dates: start: 20060801, end: 20061201
  3. ENDOXAN [Suspect]
     Indication: BREAST CANCER METASTATIC
     Route: 042
     Dates: start: 20060801, end: 20061201
  4. ZOMETA [Suspect]
     Indication: METASTASES TO BONE
     Route: 042

REACTIONS (2)
  - CARDIAC FAILURE [None]
  - HEPATIC FUNCTION ABNORMAL [None]
